FAERS Safety Report 5399655-7 (Version None)
Quarter: 2007Q3

REPORT INFORMATION
  Report Type: 
  Country: None (occurrence: None)
  Receive Date: 20070727
  Receipt Date: 20070705
  Transmission Date: 20080115
  Serious: Yes (Hospitalization)
  Sender: FDA-Public Use
  Company Number: FR-PFIZER INC-2007057046

PATIENT
  Age: 75 Year
  Sex: Male
  Weight: 85 kg

DRUGS (6)
  1. SUTENT [Suspect]
     Route: 048
     Dates: start: 20060724, end: 20070402
  2. ATORVASTATIN CALCIUM [Concomitant]
  3. BISOPROLOL FUMARATE [Concomitant]
  4. CLOPIDOGREL BISULFATE [Concomitant]
  5. RAMIPRIL [Concomitant]
  6. NICORANDIL [Concomitant]

REACTIONS (6)
  - DIARRHOEA [None]
  - ELECTROCARDIOGRAM ABNORMAL [None]
  - MYOCARDIAL INFARCTION [None]
  - RHABDOMYOLYSIS [None]
  - THROMBOCYTOPENIA [None]
  - WEIGHT DECREASED [None]
